FAERS Safety Report 13087705 (Version 1)
Quarter: 2017Q1

REPORT INFORMATION
  Report Type: Spontaneous
  Country: GB (occurrence: GB)
  Receive Date: 20170105
  Receipt Date: 20170105
  Transmission Date: 20170428
  Serious: Yes (Hospitalization, Other)
  Sender: FDA-Public Use
  Company Number: GB-ORION CORPORATION ORION PHARMA-TREX2017-0075

PATIENT
  Age: 16 Year
  Sex: Female
  Weight: 38 kg

DRUGS (7)
  1. METHOTREXATE. [Interacting]
     Active Substance: METHOTREXATE
     Indication: PSORIATIC ARTHROPATHY
     Dosage: DOSE INCREASES (RISING TO 7-5 MG AT TWO MONTHS AND 10 MG AT THREE MONTHS)
     Route: 048
  2. METHOTREXATE. [Interacting]
     Active Substance: METHOTREXATE
     Indication: ARTHRITIS
  3. PREDNISOLONE. [Concomitant]
     Active Substance: PREDNISOLONE
     Route: 065
  4. METHOTREXATE. [Suspect]
     Active Substance: METHOTREXATE
     Indication: PSORIASIS
     Route: 048
  5. IBUPROFEN. [Interacting]
     Active Substance: IBUPROFEN
     Route: 065
  6. PREDNISOLONE. [Concomitant]
     Active Substance: PREDNISOLONE
     Indication: UVEITIS
     Route: 065
  7. PREDNISOLONE. [Concomitant]
     Active Substance: PREDNISOLONE
     Dosage: DOSE REDUCED OVER 3 MONTHS TO 7-5 MG
     Route: 065

REACTIONS (8)
  - Mouth ulceration [Recovered/Resolved]
  - Epistaxis [Recovered/Resolved]
  - Hypogammaglobulinaemia [Recovered/Resolved]
  - Bone marrow failure [Recovered/Resolved]
  - Toxicity to various agents [Recovered/Resolved]
  - Pancytopenia [Recovered/Resolved]
  - Drug interaction [Unknown]
  - Pneumocystis jirovecii pneumonia [Recovered/Resolved]
